FAERS Safety Report 9303388 (Version 2)
Quarter: 2013Q2

REPORT INFORMATION
  Report Type: Spontaneous
  Country: US (occurrence: US)
  Receive Date: 20130522
  Receipt Date: 20130627
  Transmission Date: 20140414
  Serious: Yes (Other)
  Sender: FDA-Public Use
  Company Number: US-ASTRAZENECA-2013SE33601

PATIENT
  Age: 58 Year
  Sex: Female
  Weight: 61.2 kg

DRUGS (3)
  1. SYMBICORT [Suspect]
     Indication: ASTHMA
     Dosage: 80/4.5 MCG, 2 PUFFS DAILY AS REQUIRED
     Route: 055
  2. SYMBICORT [Suspect]
     Indication: ASTHMA
     Dosage: 80/4.5 MCG, 1 PUFFS DAILY AS REQUIRED
     Route: 055
  3. LEXAPRO [Concomitant]

REACTIONS (5)
  - Wrist fracture [Unknown]
  - Fall [Unknown]
  - Insomnia [Unknown]
  - Intentional drug misuse [Unknown]
  - Intentional drug misuse [Unknown]
